FAERS Safety Report 9144482 (Version 1)
Quarter: 2013Q1

REPORT INFORMATION
  Report Type: Spontaneous
  Country: US (occurrence: US)
  Receive Date: 20130306
  Receipt Date: 20130306
  Transmission Date: 20140127
  Serious: No
  Sender: FDA-Public Use
  Company Number: US-ASTRAZENECA-2013SE10879

PATIENT
  Age: 69 Year
  Sex: Female
  Weight: 79.4 kg

DRUGS (24)
  1. ATENOLOL [Suspect]
     Indication: CARDIAC DISORDER
     Route: 048
     Dates: start: 1999
  2. ATENOLOL [Suspect]
     Indication: HYPERTENSION
     Route: 048
     Dates: start: 1999
  3. ATENOLOL [Suspect]
     Indication: CARDIAC DISORDER
     Route: 048
     Dates: start: 2003
  4. ATENOLOL [Suspect]
     Indication: HYPERTENSION
     Route: 048
     Dates: start: 2003
  5. NEXIUM [Suspect]
     Indication: GASTROOESOPHAGEAL REFLUX DISEASE
     Dosage: EVERY OTHER DAY
     Route: 048
     Dates: end: 201212
  6. NEXIUM [Suspect]
     Indication: DYSPEPSIA
     Dosage: EVERY OTHER DAY
     Route: 048
     Dates: end: 201212
  7. LISINOPRIL [Suspect]
     Indication: CARDIAC DISORDER
     Route: 048
     Dates: start: 2008
  8. LISINOPRIL [Suspect]
     Indication: HYPERTENSION
     Route: 048
     Dates: start: 2008
  9. LISINOPRIL [Suspect]
     Indication: CARDIAC DISORDER
     Route: 048
     Dates: start: 2010
  10. LISINOPRIL [Suspect]
     Indication: HYPERTENSION
     Route: 048
     Dates: start: 2010
  11. OMEPRAZOLE [Suspect]
     Indication: GASTROOESOPHAGEAL REFLUX DISEASE
     Route: 048
     Dates: start: 201301
  12. OMEPRAZOLE [Suspect]
     Indication: DYSPEPSIA
     Route: 048
     Dates: start: 201301
  13. OMEPRAZOLE [Suspect]
     Indication: GASTROOESOPHAGEAL REFLUX DISEASE
     Route: 048
     Dates: start: 1993, end: 1993
  14. OMEPRAZOLE [Suspect]
     Indication: DYSPEPSIA
     Route: 048
     Dates: start: 1993, end: 1993
  15. OMEPRAZOLE [Suspect]
     Indication: GASTROOESOPHAGEAL REFLUX DISEASE
     Route: 048
     Dates: start: 201212, end: 201302
  16. OMEPRAZOLE [Suspect]
     Indication: DYSPEPSIA
     Route: 048
     Dates: start: 201212, end: 201302
  17. CRESTOR [Suspect]
     Indication: BLOOD CHOLESTEROL ABNORMAL
     Route: 048
     Dates: start: 2008
  18. CRESTOR [Suspect]
     Indication: BLOOD CHOLESTEROL ABNORMAL
     Route: 048
     Dates: start: 2010
  19. SIMVASTATIN [Suspect]
     Indication: BLOOD CHOLESTEROL ABNORMAL
     Route: 048
  20. IMDUR [Concomitant]
     Indication: CARDIAC DISORDER
  21. IMDUR [Concomitant]
     Indication: ANGINA PECTORIS
  22. HCTZ [Concomitant]
     Indication: CARDIAC DISORDER
  23. ECOTRIN ASPIRIN [Concomitant]
     Indication: CARDIAC DISORDER
  24. LIPITOR [Concomitant]
     Indication: BLOOD CHOLESTEROL ABNORMAL

REACTIONS (13)
  - Muscle spasms [Recovering/Resolving]
  - Abdominal discomfort [Recovering/Resolving]
  - Gastrooesophageal reflux disease [Not Recovered/Not Resolved]
  - Nausea [Recovering/Resolving]
  - Abdominal pain upper [Recovered/Resolved]
  - Cardiac disorder [Unknown]
  - Hypertension [Unknown]
  - Angina pectoris [Unknown]
  - Adverse drug reaction [Unknown]
  - Condition aggravated [Unknown]
  - Intentional drug misuse [Unknown]
  - Off label use [Recovering/Resolving]
  - Drug ineffective [Recovered/Resolved]
